FAERS Safety Report 4331398-0 (Version None)
Quarter: 2004Q1

REPORT INFORMATION
  Report Type: 
  Country: None (occurrence: None)
  Receive Date: 20040331
  Receipt Date: 20040319
  Transmission Date: 20041129
  Serious: Yes (Hospitalization)
  Sender: FDA-Public Use
  Company Number: 2004019719

PATIENT

DRUGS (5)
  1. NORVASC [Suspect]
     Indication: HYPERTENSION
     Dosage: ORAL
     Route: 048
  2. CARDENALIN (DOXAZOSIN) [Suspect]
     Indication: HYPERTENSION
     Dosage: ORAL
     Route: 048
  3. BETA BLOCKING AGENTS [Concomitant]
  4. ANGIOTENSIN II ANTAGONISTS [Concomitant]
  5. RIFAMIPICIN [Concomitant]

REACTIONS (4)
  - BLOOD PRESSURE INADEQUATELY CONTROLLED [None]
  - NEPHROTIC SYNDROME [None]
  - PLEURAL EFFUSION [None]
  - TUBERCULOSIS [None]
